FAERS Safety Report 6572822-2 (Version None)
Quarter: 2010Q1

REPORT INFORMATION
  Report Type: 
  Country: None (occurrence: None)
  Receive Date: 20100205
  Receipt Date: 20100128
  Transmission Date: 20100710
  Serious: Yes (Death)
  Sender: FDA-Public Use
  Company Number: US-ROCHE-682517

PATIENT
  Sex: Female

DRUGS (1)
  1. XELODA [Suspect]
     Indication: BREAST CANCER
     Dosage: DOSING REGIMEN REPORTED AS: 3 X 500 MG FOR 14 DAYS EVERY 21 DAYS
     Route: 048

REACTIONS (1)
  - DEATH [None]
